FAERS Safety Report 8733580 (Version 3)
Quarter: 2012Q4

REPORT INFORMATION
  Report Type: 
  Country: US (occurrence: US)
  Receive Date: 20120821
  Receipt Date: 20121102
  Transmission Date: 20130627
  Serious: Yes (Other)
  Sender: FDA-Public Use
  Company Number: US-PFIZER INC-2012202427

PATIENT
  Age: 46 Year
  Sex: Male
  Weight: 72.56 kg

DRUGS (6)
  1. CHANTIX [Suspect]
     Indication: SMOKING CESSATION THERAPY
     Dosage: 0.5 mg, daily
     Route: 048
     Dates: start: 2009, end: 2009
  2. CHANTIX [Suspect]
     Dosage: UNK
     Route: 048
     Dates: start: 2012
  3. CRESTOR [Concomitant]
     Indication: BLOOD CHOLESTEROL ABNORMAL
     Dosage: 20 mg, daily
  4. PLAVIX [Concomitant]
     Indication: PERIPHERAL ARTERIAL DISEASE
     Dosage: 75 mg, daily
  5. ASPIRIN [Concomitant]
     Indication: PERIPHERAL ARTERIAL DISEASE
     Dosage: 81 mg, daily
  6. ATENOLOL [Concomitant]
     Indication: BLOOD PRESSURE ABNORMAL
     Dosage: 25 mg, daily

REACTIONS (3)
  - Myocardial infarction [Recovered/Resolved]
  - Coronary artery occlusion [Unknown]
  - Drug ineffective [Unknown]
